FAERS Safety Report 7956080-X (Version None)
Quarter: 2011Q4

REPORT INFORMATION
  Report Type: 
  Country: None (occurrence: None)
  Receive Date: 20111205
  Receipt Date: 20111122
  Transmission Date: 20120403
  Serious: No
  Sender: FDA-Public Use
  Company Number: US-ELI_LILLY_AND_COMPANY-US201110001864

PATIENT
  Sex: Male
  Weight: 94.331 kg

DRUGS (4)
  1. FORTEO [Suspect]
     Indication: OSTEOPOROSIS
     Dosage: 20 UG, QD
     Dates: start: 20110801
  2. FORTEO [Suspect]
     Dosage: 20 UG, QD
     Route: 065
  3. VITAMIN D [Concomitant]
     Dosage: 2000 MG, QD
  4. NORCO [Concomitant]
     Dosage: UNK, PRN

REACTIONS (5)
  - POST PROCEDURAL DRAINAGE [None]
  - PAIN IN EXTREMITY [None]
  - PROCEDURAL PAIN [None]
  - INJECTION SITE PAIN [None]
  - HYPOAESTHESIA [None]
